FAERS Safety Report 5759884-7 (Version None)
Quarter: 2008Q2

REPORT INFORMATION
  Report Type: 
  Country: None (occurrence: None)
  Receive Date: 20080605
  Receipt Date: 20080602
  Transmission Date: 20081010
  Serious: Yes (Other)
  Sender: FDA-Public Use
  Company Number: PHHY2008ES09511

PATIENT

DRUGS (2)
  1. TORECAN [Suspect]
     Indication: VERTIGO
     Dosage: 6.5 MG
     Route: 048
     Dates: start: 20080327, end: 20080329
  2. TORECAN [Suspect]
     Dosage: 19.5 MG
     Route: 048

REACTIONS (1)
  - ANXIETY DISORDER [None]
